FAERS Safety Report 10740673 (Version 3)
Quarter: 2015Q2

REPORT INFORMATION
  Report Type: Spontaneous
  Country: US (occurrence: None)
  Receive Date: 20150123
  Receipt Date: 20150401
  Transmission Date: 20150821
  Serious: Yes (Death)
  Sender: FDA-Public Use
  Company Number: GB-LHC-2015003

PATIENT
  Sex: Male

DRUGS (1)
  1. COMPRESSED MEDICAL OXYGEN [Suspect]
     Active Substance: OXYGEN
     Route: 055
     Dates: start: 20150201, end: 20150228

REACTIONS (3)
  - Cardiac arrest [None]
  - Medical device complication [None]
  - Device malfunction [None]
